FAERS Safety Report 8197004-2 (Version None)
Quarter: 2012Q1

REPORT INFORMATION
  Report Type: 
  Country: None (occurrence: None)
  Receive Date: 20120309
  Receipt Date: 20120305
  Transmission Date: 20120608
  Serious: Yes (Hospitalization)
  Sender: FDA-Public Use
  Company Number: US-AMGEN-USASP2012014898

PATIENT
  Age: 30 Year
  Sex: Male

DRUGS (1)
  1. ENBREL [Suspect]
     Indication: ANKYLOSING SPONDYLITIS
     Dosage: 50 MG, QWK
     Dates: start: 20110601, end: 20120224

REACTIONS (4)
  - URETERAL STENT INSERTION [None]
  - BACK PAIN [None]
  - FLANK PAIN [None]
  - LITHOTRIPSY [None]
